FAERS Safety Report 13817629 (Version 1)
Quarter: 2017Q3

REPORT INFORMATION
  Report Type: Spontaneous
  Country: US (occurrence: US)
  Receive Date: 20170731
  Receipt Date: 20170731
  Transmission Date: 20171127
  Serious: Yes (Other)
  Sender: FDA-Public Use
  Company Number: US-BAYER-2017-145300

PATIENT
  Sex: Female

DRUGS (1)
  1. MIRENA [Suspect]
     Active Substance: LEVONORGESTREL
     Dosage: 20 MCG/24HR, CONT
     Route: 015
     Dates: start: 20070123, end: 201201

REACTIONS (10)
  - Headache [None]
  - Vision blurred [None]
  - Neck pain [None]
  - Back pain [None]
  - Musculoskeletal pain [None]
  - Nausea [None]
  - Vomiting [None]
  - Intracranial pressure increased [None]
  - Visual impairment [None]
  - Papilloedema [None]

NARRATIVE: CASE EVENT DATE: 20110316
